FAERS Safety Report 8304925-6 (Version None)
Quarter: 2012Q2

REPORT INFORMATION
  Report Type: 
  Country: None (occurrence: None)
  Receive Date: 20120423
  Receipt Date: 20120414
  Transmission Date: 20120825
  Serious: Yes (Hospitalization, Disabling, Other)
  Sender: FDA-Public Use
  Company Number: ZA-ASTRAZENECA-2012SE19576

PATIENT
  Age: 52 Year
  Sex: Male
  Weight: 95 kg

DRUGS (4)
  1. CRESTOR [Suspect]
     Route: 048
     Dates: start: 20080101
  2. CRESTOR [Suspect]
     Dosage: ON ALTERNATE DAYS
     Route: 048
     Dates: start: 20100101, end: 20120301
  3. CRESTOR [Suspect]
     Dosage: 5 MG ON MONDAY, WEDNESDAY AND FRIDAY ONLY, TOOK 30 TABLETS
     Route: 048
  4. CRESTOR [Suspect]
     Dosage: ON ALTERNATE DAYS
     Route: 048

REACTIONS (3)
  - ARTHRALGIA [None]
  - OFF LABEL USE [None]
  - TENDON RUPTURE [None]
